FAERS Safety Report 6478779-7 (Version None)
Quarter: 2009Q4

REPORT INFORMATION
  Report Type: 
  Country: None (occurrence: None)
  Receive Date: 20091202
  Receipt Date: 20091117
  Transmission Date: 20100525
  Serious: Yes (Life-Threatening, Hospitalization)
  Sender: FDA-Public Use
  Company Number: AUR-APL-2009-01073

PATIENT
  Age: 49 Year
  Sex: Female

DRUGS (6)
  1. METFORMIN HCL [Suspect]
     Indication: TYPE 2 DIABETES MELLITUS
     Dosage: ORAL
     Route: 048
  2. LOSARTAN [Suspect]
  3. ATENOLOL [Concomitant]
  4. BENDROFLUAZIDE [Concomitant]
  5. NSAID NOS [Concomitant]
  6. PROCHLORPERAZINE [Concomitant]

REACTIONS (8)
  - ABDOMINAL PAIN LOWER [None]
  - DIARRHOEA [None]
  - DYSPNOEA [None]
  - HYPOTENSION [None]
  - HYPOXIA [None]
  - LACTIC ACIDOSIS [None]
  - PULMONARY OEDEMA [None]
  - RENAL FAILURE ACUTE [None]
